FAERS Safety Report 5418570-3 (Version None)
Quarter: 2007Q3

REPORT INFORMATION
  Report Type: 
  Country: None (occurrence: None)
  Receive Date: 20070817
  Receipt Date: 20070810
  Transmission Date: 20080115
  Serious: Yes (Hospitalization)
  Sender: FDA-Public Use
  Company Number: FR-SHR-FR-2007-026157

PATIENT
  Age: 76 Year
  Sex: Female
  Weight: 70 kg

DRUGS (14)
  1. ULTRAVIST 300 [Suspect]
     Dosage: 130 ML, 1 DOSE
     Route: 042
     Dates: start: 20070628, end: 20070628
  2. AMARYL [Concomitant]
     Indication: TYPE 2 DIABETES MELLITUS
     Dosage: 4 MG, 1X/DAY
     Route: 048
  3. PHYSIOTENS ^GIULINI^ [Concomitant]
     Dosage: .4 UNK, 1X/DAY
     Route: 048
  4. GLUCOPHAGE [Concomitant]
     Indication: TYPE 2 DIABETES MELLITUS
     Dosage: 2000 MG, 1X/DAY
     Route: 048
  5. ACTOS [Concomitant]
     Indication: TYPE 2 DIABETES MELLITUS
     Dosage: 1 TAB(S), 1X/DAY
     Route: 048
  6. SKENAN [Concomitant]
     Indication: PAIN
     Dosage: 2 CAP(S), 1X/DAY
     Route: 048
  7. VERAPAMIL [Concomitant]
     Dosage: 240 MG, 2X/DAY
     Route: 048
  8. KARDEGIC                                /FRA/ [Concomitant]
     Dosage: 1 TAB(S), 1X/DAY
     Route: 048
  9. LISINOPRIL [Concomitant]
     Dosage: 1 TAB(S), 1X/DAY
     Route: 048
  10. TRANXENE [Concomitant]
     Dosage: 1 TAB(S), 1X/DAY
     Route: 048
  11. OMEPRAZOLE [Concomitant]
     Dosage: 1 TAB(S), 1X/6 WEEKS
     Route: 048
  12. FOSAMAX [Concomitant]
     Dosage: 1 TAB(S), 1X/DAY
     Route: 048
  13. ESCITALOPRAM OXALATE [Concomitant]
     Dosage: 1 TAB(S), 1X/DAY
     Route: 048
  14. FUMAFER [Concomitant]
     Dosage: 2 TAB(S), 1X/DAY
     Route: 048

REACTIONS (3)
  - ACUTE PULMONARY OEDEMA [None]
  - DYSPNOEA [None]
  - MALAISE [None]
